FAERS Safety Report 9797242 (Version 1)
Quarter: 2014Q1

REPORT INFORMATION
  Report Type: Spontaneous
  Country: US (occurrence: None)
  Receive Date: 20140102
  Receipt Date: 20140102
  Transmission Date: 20141002
  Serious: Yes (Disabling)
  Sender: FDA-Public Use
  Company Number: None

PATIENT
  Age: 32 Year
  Sex: Female
  Weight: 68.04 kg

DRUGS (9)
  1. MIRENA IUD [Suspect]
     Indication: CONTRACEPTION
     Dosage: IMPLANTED IN UTERUS
     Dates: start: 20110301, end: 20130106
  2. CETIRIZINE [Concomitant]
  3. SERTRALINE [Concomitant]
  4. FLUTICASONE [Concomitant]
  5. FISH OIL [Concomitant]
  6. TUMERIC [Concomitant]
  7. COQ10 [Concomitant]
  8. CALCIUM [Concomitant]
  9. PROBIOTIC [Concomitant]

REACTIONS (1)
  - Rheumatoid arthritis [None]
